FAERS Safety Report 15935249 (Version 1)
Quarter: 2019Q1

REPORT INFORMATION
  Report Type: Spontaneous
  Country: CN (occurrence: CN)
  Receive Date: 20190207
  Receipt Date: 20190207
  Transmission Date: 20190417
  Serious: Yes (Other)
  Sender: FDA-Public Use
  Company Number: CN-BAXTER-2019BAX002403

PATIENT
  Age: 38 Year
  Sex: Male
  Weight: 38 kg

DRUGS (2)
  1. 0.9% SODIUM CHLORIDE INJECTION [Suspect]
     Active Substance: SODIUM CHLORIDE
     Indication: MEDICATION DILUTION
     Dosage: IV GTT VELOCITY OF 50 DROPS/MIN
     Route: 041
     Dates: start: 20181107, end: 20181107
  2. SHIOMARIN [Suspect]
     Active Substance: LATAMOXEF DISODIUM
     Indication: SKIN LACERATION
     Route: 041
     Dates: start: 20181107, end: 20181107

REACTIONS (2)
  - Pruritus [Recovering/Resolving]
  - Rash erythematous [Recovering/Resolving]

NARRATIVE: CASE EVENT DATE: 20181107
